APPROVED DRUG PRODUCT: DONEPEZIL HYDROCHLORIDE
Active Ingredient: DONEPEZIL HYDROCHLORIDE
Strength: 10MG
Dosage Form/Route: TABLET;ORAL
Application: A202114 | Product #002 | TE Code: AB
Applicant: RISING PHARMA HOLDING INC
Approved: Jul 5, 2013 | RLD: No | RS: No | Type: RX